FAERS Safety Report 10644727 (Version 1)
Quarter: 2014Q4

REPORT INFORMATION
  Report Type: Spontaneous
  Country: GB (occurrence: GB)
  Receive Date: 20141211
  Receipt Date: 20141211
  Transmission Date: 20150529
  Serious: Yes (Other)
  Sender: FDA-Public Use
  Company Number: GB-009507513-1412GBR001294

PATIENT
  Age: 53 Year
  Sex: Male

DRUGS (3)
  1. MOMETASONE FUROATE. [Suspect]
     Active Substance: MOMETASONE FUROATE
     Dosage: 50 MICROGRAM, UNK
     Route: 045
     Dates: start: 20141101, end: 20141107
  2. NASONEX [Concomitant]
     Active Substance: MOMETASONE FUROATE
     Dosage: HAD BEEN TAKING FOR 4 YEARS BEFORE SWAPPING TO GENERIC
     Dates: start: 2010, end: 2014
  3. MOMETASONE FUROATE. [Suspect]
     Active Substance: MOMETASONE FUROATE
     Dosage: 50 MICROGRAM, UNK
     Route: 045
     Dates: start: 20140501, end: 20141020

REACTIONS (2)
  - Headache [Recovering/Resolving]
  - Product substitution issue [Unknown]

NARRATIVE: CASE EVENT DATE: 2014
